FAERS Safety Report 7271832-X (Version None)
Quarter: 2011Q1

REPORT INFORMATION
  Report Type: 
  Country: None (occurrence: None)
  Receive Date: 20110126
  Receipt Date: 20110111
  Transmission Date: 20110831
  Serious: Yes (Hospitalization)
  Sender: FDA-Public Use
  Company Number: SP-2006-003032

PATIENT
  Age: 59 Year
  Sex: Male
  Weight: 120 kg

DRUGS (8)
  1. ARANESP [Suspect]
     Indication: PRODUCT USED FOR UNKNOWN INDICATION
     Dosage: SUBCUTANEOUS
     Route: 058
     Dates: end: 20060218
  2. ONCOVIN [Suspect]
     Indication: PRODUCT USED FOR UNKNOWN INDICATION
  3. NEULASTA [Suspect]
     Indication: PRODUCT USED FOR UNKNOWN INDICATION
     Dosage: SUBCUTANEOUS
     Route: 058
     Dates: end: 20060218
  4. CORTANCYL (PREDNISONE) (PREDNISONE) [Suspect]
     Indication: PRODUCT USED FOR UNKNOWN INDICATION
     Dosage: 20 MG (20 MG, 1 IN 1 D), ORAL
     Route: 048
  5. CYCLOPHOSPHAMIDE [Suspect]
     Indication: PRODUCT USED FOR UNKNOWN INDICATION
  6. OLMESARTAN MEDOXOMIL [Suspect]
     Indication: ESSENTIAL HYPERTENSION
     Dosage: 20 MG 920 MG, 1 IN 1 D), ORAL
     Route: 048
  7. LOXEN (NICARDIPINE HYDROCHLORIDE) (50 MILLIGRAM) (NICARDIPINE HYDROCHL [Suspect]
     Indication: ESSENTIAL HYPERTENSION
     Dosage: 100 MG (50 MG, 2 IN 1 D), ORAL
     Route: 048
  8. DOXORUBICIN HCL [Suspect]
     Indication: PRODUCT USED FOR UNKNOWN INDICATION

REACTIONS (4)
  - VENTRICULAR HYPOKINESIA [None]
  - ANAEMIA [None]
  - CORONARY ARTERY STENOSIS [None]
  - ACUTE CORONARY SYNDROME [None]
